FAERS Safety Report 7219473-4 (Version None)
Quarter: 2011Q1

REPORT INFORMATION
  Report Type: 
  Country: None (occurrence: None)
  Receive Date: 20110111
  Receipt Date: 20110103
  Transmission Date: 20110831
  Serious: Yes (Hospitalization)
  Sender: FDA-Public Use
  Company Number: FR-JNJFOC-20110100504

PATIENT
  Sex: Male

DRUGS (5)
  1. SECTRAL [Suspect]
     Indication: HYPERTENSION
     Dosage: 200 MG 1 TABLET IN THE MORNING AND 1 IN THE EVENING
     Route: 048
  2. TRANXENE [Concomitant]
     Indication: PROPHYLAXIS
     Route: 065
  3. EQUANIL [Concomitant]
     Dosage: 400 MG 1 TABLET IN THE MORNING AND 1 IN THE EVENING
     Route: 065
  4. PRAZEPAM [Concomitant]
     Route: 065
  5. IMODIUM [Suspect]
     Indication: PRODUCT USED FOR UNKNOWN INDICATION
     Route: 048

REACTIONS (7)
  - IIIRD NERVE PARALYSIS [None]
  - COMA [None]
  - OVERDOSE [None]
  - BRADYCARDIA [None]
  - HYPERCAPNIA [None]
  - URINARY RETENTION [None]
  - PARAPARESIS [None]
